FAERS Safety Report 25045532 (Version 1)
Quarter: 2025Q1

REPORT INFORMATION
  Report Type: Spontaneous
  Country: US (occurrence: US)
  Receive Date: 20250306
  Receipt Date: 20250306
  Transmission Date: 20250409
  Serious: Yes (Death)
  Sender: RIGEL PHARMACEUTICALS
  Company Number: US-RIGEL Pharmaceuticals IN-20250300002

PATIENT
  Age: 82 Year
  Sex: Female
  Weight: 103.42 kg

DRUGS (4)
  1. REZLIDHIA [Suspect]
     Active Substance: OLUTASIDENIB
     Indication: Acute myeloid leukaemia
     Dosage: 150 MILLIGRAM, BID
     Route: 048
     Dates: start: 20240222, end: 20250224
  2. REZLIDHIA [Suspect]
     Active Substance: OLUTASIDENIB
     Indication: Myelodysplastic syndrome
  3. TIBSOVO [Concomitant]
     Active Substance: IVOSIDENIB
     Indication: Myelodysplastic syndrome
     Dosage: 250 MG, QD
     Route: 048
     Dates: start: 20221128
  4. AMLODIPINE [Concomitant]
     Active Substance: AMLODIPINE BESYLATE
     Indication: Product used for unknown indication
     Dosage: 10 MG, QD
     Dates: start: 2024

REACTIONS (2)
  - Death [Fatal]
  - Off label use [Unknown]

NARRATIVE: CASE EVENT DATE: 20240222
